FAERS Safety Report 7668077-8 (Version None)
Quarter: 2011Q3

REPORT INFORMATION
  Report Type: 
  Country: None (occurrence: None)
  Receive Date: 20110808
  Receipt Date: 20110801
  Transmission Date: 20111222
  Serious: No
  Sender: FDA-Public Use
  Company Number: US-PFIZER INC-2011177028

PATIENT
  Sex: Female
  Weight: 65.8 kg

DRUGS (2)
  1. LO/OVRAL-28 [Suspect]
     Indication: CONTRACEPTION
     Dosage: 1 DF, 1X/DAY
     Route: 048
     Dates: start: 20110101, end: 20110101
  2. WELLBUTRIN [Concomitant]

REACTIONS (1)
  - URTICARIA [None]
